FAERS Safety Report 11140505 (Version 2)
Quarter: 2017Q2

REPORT INFORMATION
  Report Type: Spontaneous
  Country: US (occurrence: US)
  Receive Date: 20150525
  Receipt Date: 20170607
  Transmission Date: 20170829
  Serious: Yes (Other)
  Sender: FDA-Public Use
  Company Number: US-JNJFOC-20141202262

PATIENT
  Age: 21 Year
  Sex: Male

DRUGS (5)
  1. RISPERIDONE. [Suspect]
     Active Substance: RISPERIDONE
     Indication: PRODUCT USED FOR UNKNOWN INDICATION
     Route: 048
  2. RISPERDAL [Suspect]
     Active Substance: RISPERIDONE
     Indication: BIPOLAR I DISORDER
     Dosage: VARYING DOSE OF 0.5 MG TO 4.0 MG
     Route: 048
     Dates: start: 201105, end: 201202
  3. RISPERDAL [Suspect]
     Active Substance: RISPERIDONE
     Indication: SCHIZOPHRENIA
     Dosage: VARYING DOSE OF 0.5 MG TO 4.0 MG
     Route: 048
     Dates: start: 201105, end: 201202
  4. RISPERDAL [Suspect]
     Active Substance: RISPERIDONE
     Indication: AUTISM SPECTRUM DISORDER
     Dosage: VARYING DOSE OF 0.5 MG TO 4.0 MG
     Route: 048
     Dates: start: 201105, end: 201202
  5. RISPERIDONE. [Suspect]
     Active Substance: RISPERIDONE
     Indication: PRODUCT USED FOR UNKNOWN INDICATION
     Route: 048

REACTIONS (1)
  - Gynaecomastia [Unknown]

NARRATIVE: CASE EVENT DATE: 201104
